FAERS Safety Report 25993803 (Version 2)
Quarter: 2025Q4

REPORT INFORMATION
  Report Type: Report from Study
  Country: EU (occurrence: EU)
  Receive Date: 20251104
  Receipt Date: 20251111
  Transmission Date: 20260118
  Serious: Yes (Hospitalization)
  Sender: ABBVIE
  Company Number: EU-ABBVIE-6503933

PATIENT
  Age: 63 Year
  Sex: Male

DRUGS (4)
  1. FOSCARBIDOPA\FOSLEVODOPA [Suspect]
     Active Substance: FOSCARBIDOPA\FOSLEVODOPA
     Indication: Product used for unknown indication
     Dosage: FLOW RATE 1: 0.53 ML/H, DURATION (H): FROM 6H45A 19H.?FLOW RATE 2: 0.37 ML/H, DURATION (H): FROM ...
     Route: 058
     Dates: start: 20251010
  2. FOSCARBIDOPA\FOSLEVODOPA [Suspect]
     Active Substance: FOSCARBIDOPA\FOSLEVODOPA
     Dosage: INCREASE THE FLOW RATE TO 0.54ML/H DURING THE DAY AND LEAVE 0.37ML/H AT NIGHT
     Route: 058
     Dates: start: 202510, end: 202510
  3. FOSCARBIDOPA\FOSLEVODOPA [Suspect]
     Active Substance: FOSCARBIDOPA\FOSLEVODOPA
     Dosage: INCREASING THE FLOW RATE TO 0.38 ML/H OR EVEN 0.39 ML/H?FIRST ADMIN DATE: OCT 2025
     Route: 058
  4. CLOZAPINE [Concomitant]
     Active Substance: CLOZAPINE
     Indication: Hallucination
     Dosage: 2 TABLETS PER DAY
     Route: 048
     Dates: start: 20251020

REACTIONS (11)
  - Disorientation [Not Recovered/Not Resolved]
  - On and off phenomenon [Not Recovered/Not Resolved]
  - Akinesia [Not Recovered/Not Resolved]
  - Asthenia [Not Recovered/Not Resolved]
  - Tremor [Not Recovered/Not Resolved]
  - Hyperhidrosis [Not Recovered/Not Resolved]
  - Micturition urgency [Not Recovered/Not Resolved]
  - Hallucination, visual [Not Recovered/Not Resolved]
  - Confusional state [Not Recovered/Not Resolved]
  - Dyskinesia [Not Recovered/Not Resolved]
  - Therapeutic product effect incomplete [Unknown]

NARRATIVE: CASE EVENT DATE: 20251001
